FAERS Safety Report 18388086 (Version 1)
Quarter: 2020Q4

REPORT INFORMATION
  Report Type: Report from Study
  Country: BR (occurrence: BR)
  Receive Date: 20201015
  Receipt Date: 20201015
  Transmission Date: 20210114
  Serious: Yes (Other)
  Sender: FDA-Public Use
  Company Number: NVSC2020BR276716

PATIENT
  Age: 75 Year
  Sex: Female

DRUGS (1)
  1. AZORGA [Suspect]
     Active Substance: BRINZOLAMIDE\TIMOLOL MALEATE
     Indication: PRODUCT USED FOR UNKNOWN INDICATION
     Dosage: UNK (MANYYEARS AGO)
     Route: 065

REACTIONS (3)
  - Respiratory disorder [Unknown]
  - Respiratory tract infection [Unknown]
  - Feeding tube user [Unknown]
